FAERS Safety Report 4475985-8 (Version None)
Quarter: 2004Q3

REPORT INFORMATION
  Report Type: 
  Country: None (occurrence: None)
  Receive Date: 20040923
  Receipt Date: 20040811
  Transmission Date: 20050211
  Serious: No
  Sender: FDA-Public Use
  Company Number: USA040670538

PATIENT
  Age: 80 Year
  Sex: Female
  Weight: 56 kg

DRUGS (6)
  1. FORTEO [Suspect]
     Indication: DRUG INEFFECTIVE
     Dosage: 20 UG/ 1 DAY
     Dates: start: 20031201
  2. ZOCOR [Concomitant]
  3. IRON [Concomitant]
  4. CALCIUM PLUS D [Concomitant]
  5. VITAMIN E [Concomitant]
  6. VITAMIN C [Concomitant]

REACTIONS (8)
  - CONTUSION [None]
  - DIFFICULTY IN WALKING [None]
  - FALL [None]
  - INJECTION SITE HAEMORRHAGE [None]
  - INJECTION SITE MASS [None]
  - JOINT INJURY [None]
  - LIMB INJURY [None]
  - PAIN IN EXTREMITY [None]
